FAERS Safety Report 24941357 (Version 1)
Quarter: 2025Q1

REPORT INFORMATION
  Report Type: Spontaneous
  Country: US (occurrence: None)
  Receive Date: 20250206
  Receipt Date: 20250206
  Transmission Date: 20250408
  Serious: Yes (Death)
  Sender: FDA-CTU
  Company Number: None

PATIENT
  Age: 61 Year
  Sex: Female
  Weight: 78.93 kg

DRUGS (11)
  1. TACROLIMUS [Suspect]
     Active Substance: TACROLIMUS
     Indication: Renal transplant
     Route: 048
     Dates: start: 20191107
  2. MYCOPHENOLIC ACID [Suspect]
     Active Substance: MYCOPHENOLIC ACID
     Indication: Renal transplant
     Dosage: 360 MG BID ORAL
     Route: 048
     Dates: start: 20191104
  3. PREDNISONE [Concomitant]
     Active Substance: PREDNISONE
  4. ACETAMINOPHEN\HYDROCODONE [Concomitant]
     Active Substance: ACETAMINOPHEN\HYDROCODONE
  5. MOUNJARO [Concomitant]
     Active Substance: TIRZEPATIDE
  6. DIAZEPAM [Concomitant]
     Active Substance: DIAZEPAM
  7. DIAZEPAM [Concomitant]
     Active Substance: DIAZEPAM
  8. DULOXETINE [Concomitant]
     Active Substance: DULOXETINE
  9. DULOXETINE [Concomitant]
     Active Substance: DULOXETINE
  10. JANUVIA [Concomitant]
     Active Substance: SITAGLIPTIN PHOSPHATE
  11. MONTELUKAST [Concomitant]
     Active Substance: MONTELUKAST

REACTIONS (5)
  - Influenza like illness [None]
  - Enteritis infectious [None]
  - Renal failure [None]
  - Dialysis [None]
  - Gastrointestinal disorder [None]

NARRATIVE: CASE EVENT DATE: 20250204
